FAERS Safety Report 4719636-3 (Version None)
Quarter: 2005Q3

REPORT INFORMATION
  Report Type: 
  Country: None (occurrence: None)
  Receive Date: 20050721
  Receipt Date: 20040507
  Transmission Date: 20060218
  Serious: Yes (Other)
  Sender: FDA-Public Use
  Company Number: US-GLAXOSMITHKLINE-A0510025A

PATIENT
  Age: 44 Year
  Sex: Male

DRUGS (14)
  1. AVANDIA [Suspect]
     Dosage: 4MG PER DAY
     Route: 048
     Dates: start: 19990813
  2. ALBUTEROL [Concomitant]
  3. GLYNASE [Concomitant]
  4. XANAX [Concomitant]
  5. AMBIEN [Concomitant]
  6. GLUCOPHAGE [Concomitant]
  7. SEREVENT [Concomitant]
  8. REZULIN [Concomitant]
  9. GLYBURIDE [Concomitant]
  10. SURMONTIL [Concomitant]
  11. WELLBUTRIN [Concomitant]
     Dates: start: 20000101
  12. PLAVIX [Concomitant]
  13. LANTUS [Concomitant]
     Dates: start: 20011005
  14. ZOCOR [Concomitant]

REACTIONS (1)
  - CARDIAC FAILURE CONGESTIVE [None]
